FAERS Safety Report 6904868-6 (Version None)
Quarter: 2010Q3

REPORT INFORMATION
  Report Type: 
  Country: None (occurrence: None)
  Receive Date: 20100804
  Receipt Date: 20090728
  Transmission Date: 20110219
  Serious: No
  Sender: FDA-Public Use
  Company Number: US-PFIZER INC-2009225218

PATIENT
  Sex: Female
  Weight: 68 kg

DRUGS (5)
  1. LYRICA [Suspect]
     Indication: FIBROMYALGIA
     Dosage: 75 MG, 2X/DAY
     Dates: start: 20070101
  2. LYRICA [Suspect]
     Indication: SPINAL FUSION SURGERY
  3. SYNTHROID [Concomitant]
     Dosage: UNK
  4. VICODIN [Concomitant]
     Dosage: UNK
  5. SOMA [Concomitant]
     Dosage: UNK

REACTIONS (2)
  - PAIN [None]
  - VISION BLURRED [None]
